FAERS Safety Report 11663290 (Version 1)
Quarter: 2015Q4

REPORT INFORMATION
  Report Type: Spontaneous
  Country: US (occurrence: US)
  Receive Date: 20151027
  Receipt Date: 20151027
  Transmission Date: 20160304
  Serious: Yes (Hospitalization, Other)
  Sender: FDA-Public Use
  Company Number: US-MEDA-2010060018

PATIENT
  Age: 49 Year
  Sex: Male
  Weight: 107 kg

DRUGS (7)
  1. SOMA [Concomitant]
     Active Substance: CARISOPRODOL
     Indication: BACK PAIN
     Route: 048
     Dates: end: 20100603
  2. EDLUAR [Suspect]
     Active Substance: ZOLPIDEM TARTRATE
     Indication: INITIAL INSOMNIA
     Route: 060
     Dates: start: 201001, end: 20100603
  3. ZOLPIDEM [Suspect]
     Active Substance: ZOLPIDEM\ZOLPIDEM TARTRATE
     Indication: INITIAL INSOMNIA
     Route: 048
     Dates: start: 201005, end: 20100603
  4. HYDROCODONE [Concomitant]
     Active Substance: HYDROCODONE
     Indication: BACK PAIN
     Route: 048
     Dates: end: 20100603
  5. ELAVIL [Concomitant]
     Active Substance: AMITRIPTYLINE HYDROCHLORIDE
     Indication: BACK PAIN
     Route: 048
     Dates: end: 20100603
  6. EDLUAR [Suspect]
     Active Substance: ZOLPIDEM TARTRATE
     Indication: MIDDLE INSOMNIA
     Route: 060
     Dates: start: 201001, end: 20100603
  7. ZOLPIDEM [Suspect]
     Active Substance: ZOLPIDEM\ZOLPIDEM TARTRATE
     Indication: MIDDLE INSOMNIA
     Route: 048
     Dates: start: 201005, end: 20100603

REACTIONS (8)
  - Drug ineffective for unapproved indication [Recovered/Resolved]
  - Amnesia [Not Recovered/Not Resolved]
  - Loss of consciousness [Recovered/Resolved]
  - Road traffic accident [Recovered/Resolved]
  - Drug ineffective [Recovered/Resolved]
  - Inappropriate schedule of drug administration [Recovered/Resolved]
  - Expired product administered [Recovered/Resolved]
  - Hallucination [Recovered/Resolved]

NARRATIVE: CASE EVENT DATE: 2010
